FAERS Safety Report 5945507-0 (Version None)
Quarter: 2008Q4

REPORT INFORMATION
  Report Type: 
  Country: None (occurrence: None)
  Receive Date: 20081107
  Receipt Date: 20081101
  Transmission Date: 20090506
  Serious: Yes (Congenital Anomaly)
  Sender: FDA-Public Use
  Company Number: IT-B.I. PHARMACEUTICALS,INC./RIDGEFIELD-2008-DE-02017GD

PATIENT
  Sex: Female

DRUGS (3)
  1. NEVIRAPINE [Suspect]
     Route: 064
  2. TENOFOVIR [Suspect]
     Route: 064
  3. LAMIVUDINE [Suspect]
     Route: 064

REACTIONS (1)
  - PYELOCALIECTASIS [None]
